FAERS Safety Report 21121926 (Version 4)
Quarter: 2022Q4

REPORT INFORMATION
  Report Type: Spontaneous
  Country: US (occurrence: US)
  Receive Date: 20220722
  Receipt Date: 20221006
  Transmission Date: 20230112
  Serious: No
  Sender: FDA-Public Use
  Company Number: US-SA-SAC20220718000675

PATIENT
  Age: 71 Year
  Sex: Male
  Weight: 83 kg

DRUGS (1)
  1. DUPIXENT [Suspect]
     Active Substance: DUPILUMAB
     Indication: Illness
     Dosage: 300 MG, QOW
     Route: 058

REACTIONS (12)
  - Joint stiffness [Unknown]
  - Fungal infection [Unknown]
  - Prostatomegaly [Unknown]
  - Dry skin [Unknown]
  - Pruritus [Unknown]
  - Weight decreased [Unknown]
  - Arthralgia [Unknown]
  - Furuncle [Unknown]
  - Blood pressure abnormal [Recovering/Resolving]
  - Onychomycosis [Unknown]
  - Therapeutic product effect variable [Unknown]
  - Product use in unapproved indication [Unknown]

NARRATIVE: CASE EVENT DATE: 20220701
